FAERS Safety Report 9731784 (Version 1)
Quarter: 2013Q4

REPORT INFORMATION
  Report Type: Spontaneous
  Country: US (occurrence: None)
  Receive Date: 20131203
  Receipt Date: 20131203
  Transmission Date: 20140711
  Serious: Yes (Death)
  Sender: FDA-Public Use
  Company Number: US-ALKEM-000273

PATIENT
  Age: 36 Year
  Sex: Male

DRUGS (3)
  1. METFORMIN (METFORMIN) [Suspect]
     Route: 048
  2. LISINOPRIL (LISINOPRIL) [Suspect]
     Route: 048
  3. FLUOXETINE (FLUOXETINE) [Suspect]
     Route: 048

REACTIONS (2)
  - Completed suicide [None]
  - Overdose [None]
